FAERS Safety Report 21467232 (Version 1)
Quarter: 2022Q4

REPORT INFORMATION
  Report Type: Spontaneous
  Country: GB (occurrence: None)
  Receive Date: 20221017
  Receipt Date: 20221017
  Transmission Date: 20230113
  Serious: Yes (Hospitalization, Other)
  Sender: FDA-Public Use
  Company Number: 2022A348033

PATIENT
  Sex: Female

DRUGS (1)
  1. OMEPRAZOLE [Suspect]
     Active Substance: OMEPRAZOLE
     Route: 065

REACTIONS (3)
  - Pharyngeal swelling [Recovered/Resolved]
  - Aphonia [Recovered/Resolved]
  - Gastrooesophageal reflux disease [Recovered/Resolved]
